FAERS Safety Report 12168024 (Version 1)
Quarter: 2016Q1

REPORT INFORMATION
  Report Type: Spontaneous
  Country: PK (occurrence: PK)
  Receive Date: 20160310
  Receipt Date: 20160310
  Transmission Date: 20160526
  Serious: Yes (Other)
  Sender: FDA-Public Use
  Company Number: PK-KADMON PHARMACEUTICALS, LLC-KAD201304-000493

PATIENT
  Age: 50 Year
  Sex: Female

DRUGS (2)
  1. RIBAVIRIN. [Suspect]
     Active Substance: RIBAVIRIN
     Indication: CHRONIC HEPATITIS C
  2. INTERFERON [Suspect]
     Active Substance: INTERFERON
     Indication: CHRONIC HEPATITIS C

REACTIONS (3)
  - Retinal vein thrombosis [Not Recovered/Not Resolved]
  - Dyslipidaemia [Unknown]
  - Arteriosclerosis [Unknown]
